FAERS Safety Report 9513003 (Version 1)
Quarter: 2013Q3

REPORT INFORMATION
  Report Type: Spontaneous
  Country: IT (occurrence: IT)
  Receive Date: 20130910
  Receipt Date: 20130910
  Transmission Date: 20140515
  Serious: Yes (Hospitalization)
  Sender: FDA-Public Use
  Company Number: IT-TEVA-430145ISR

PATIENT
  Age: 45 Year
  Sex: Female

DRUGS (14)
  1. MICOFENOLATO MOFETILE [Suspect]
     Indication: HEART TRANSPLANT
     Dosage: 1250 MILLIGRAM DAILY;
     Route: 048
     Dates: start: 20130301, end: 20130607
  2. MICOFENOLATO MOFETILE [Suspect]
     Dosage: 1500 MILLIGRAM DAILY;
     Route: 048
     Dates: start: 20130301, end: 20130607
  3. COUMADIN [Concomitant]
  4. PROGRAF 5MG [Concomitant]
  5. ZYLORIC 300MG [Concomitant]
  6. SERETIDE [Concomitant]
  7. LASIX [Concomitant]
  8. DELTACORTENE [Concomitant]
  9. PLAQUENIL [Concomitant]
  10. PANTORC 40MG [Concomitant]
     Dosage: GASTRO-RESISTANT TABLETS
  11. KCL RETARD [Concomitant]
  12. MAG2 [Concomitant]
  13. ATORVASTATINA [Concomitant]
  14. BISOPROLOLO EMIFUMARATO [Concomitant]

REACTIONS (1)
  - Polyarthritis [Recovered/Resolved]
